FAERS Safety Report 20947676 (Version 2)
Quarter: 2022Q2

REPORT INFORMATION
  Report Type: Report from Study
  Country: PL (occurrence: None)
  Receive Date: 20220611
  Receipt Date: 20220613
  Transmission Date: 20220721
  Serious: Yes (Life-Threatening)
  Sender: FDA-Public Use
  Company Number: PL-ROCHE-3113027

PATIENT
  Age: 49 Year
  Sex: Female
  Weight: 56 kg

DRUGS (30)
  1. OCRELIZUMAB [Suspect]
     Active Substance: OCRELIZUMAB
     Indication: Progressive multiple sclerosis
     Route: 042
     Dates: start: 20181015
  2. NUVARING [Concomitant]
     Active Substance: ETHINYL ESTRADIOL\ETONOGESTREL
     Dates: start: 20180310
  3. VESICARE [Concomitant]
     Active Substance: SOLIFENACIN SUCCINATE
     Route: 048
     Dates: start: 20200902
  4. FLUNARIZINUM [Concomitant]
     Route: 048
     Dates: start: 20210205, end: 20210407
  5. TOPAMAX [Concomitant]
     Active Substance: TOPIRAMATE
     Route: 048
     Dates: start: 20210416
  6. CINIE [Concomitant]
     Route: 048
     Dates: start: 20210205
  7. METHYLPREDNISOLONE [Concomitant]
     Active Substance: METHYLPREDNISOLONE
     Dosage: 29/OCT/2018, 09/APR/2019, 08/OCT/2019, 17/MAR/2020, 01/SEP/2020, 04/FEB/2021, 20/JUL/2021
     Route: 042
     Dates: start: 20181015
  8. CETIRIZINE HYDROCHLORIDE [Concomitant]
     Active Substance: CETIRIZINE HYDROCHLORIDE
     Dosage: 29/OCT/2018, 09/APR/2019, 08/OCT/2019, 17/MAR/2020, 01/SEP/2020, 04/FEB/2021, 20/JUL/2021
     Route: 048
     Dates: start: 20181015
  9. CEFEPIME [Concomitant]
     Active Substance: CEFEPIME HYDROCHLORIDE
     Indication: Adverse event
     Dates: start: 20220219
  10. CLINDAMYCIN [Concomitant]
     Active Substance: CLINDAMYCIN
     Indication: Adverse event
     Dates: start: 20220220
  11. LACTOBACILLUS RHAMNOSUS [Concomitant]
     Active Substance: LACTOBACILLUS RHAMNOSUS
     Indication: Prophylaxis
     Dates: start: 20220219
  12. METAMIZOLE [Concomitant]
     Active Substance: METAMIZOLE
     Indication: Adverse event
  13. POTASSIUM CHLORIDE [Concomitant]
     Active Substance: POTASSIUM CHLORIDE
     Indication: Prophylaxis
     Dates: start: 20220219
  14. ACYCLOVIR [Concomitant]
     Active Substance: ACYCLOVIR
     Indication: Prophylaxis
     Dates: start: 20220410
  15. CEFTRIAXONE [Concomitant]
     Active Substance: CEFTRIAXONE
     Indication: Adverse event
     Dates: start: 20220406
  16. CEFUROXIME [Concomitant]
     Active Substance: CEFUROXIME
  17. CHOLECALCIFEROL [Concomitant]
     Active Substance: CHOLECALCIFEROL
     Indication: Adverse event
     Dates: start: 20220406
  18. DIAZEPAM [Concomitant]
     Active Substance: DIAZEPAM
     Indication: Adverse event
     Route: 042
     Dates: start: 20220407
  19. ENOXAPARIN [Concomitant]
     Active Substance: ENOXAPARIN
     Indication: Prophylaxis
     Dates: start: 20220406
  20. FILGRASTIM [Concomitant]
     Active Substance: FILGRASTIM
     Indication: Adverse event
     Route: 058
     Dates: start: 20220408, end: 20220411
  21. HYDROCORTISONE [Concomitant]
     Active Substance: HYDROCORTISONE
     Indication: Adverse event
     Dates: start: 20220407
  22. KETOPROFEN [Concomitant]
     Active Substance: KETOPROFEN
     Indication: Adverse event
     Dates: start: 20220407
  23. METAMIZOLE [Concomitant]
     Active Substance: METAMIZOLE
     Indication: Adverse event
     Dates: start: 20220407
  24. PANTOPRAZOLE [Concomitant]
     Active Substance: PANTOPRAZOLE
     Indication: Adverse event
     Dates: start: 20220406
  25. POTASSIUM CHLORIDE [Concomitant]
     Active Substance: POTASSIUM CHLORIDE
     Indication: Prophylaxis
     Dates: start: 20220406
  26. HUMAN RED BLOOD CELL [Concomitant]
     Active Substance: HUMAN RED BLOOD CELL
     Indication: Adverse event
     Dates: start: 20220408
  27. CYCLOPHOSPHAMIDE [Concomitant]
     Active Substance: CYCLOPHOSPHAMIDE
     Indication: Adverse event
     Dates: start: 20220205
  28. CYCLOPHOSPHAMIDE [Concomitant]
     Active Substance: CYCLOPHOSPHAMIDE
     Dates: start: 20220305
  29. CYCLOPHOSPHAMIDE [Concomitant]
     Active Substance: CYCLOPHOSPHAMIDE
     Dates: start: 20220402
  30. PALONOSETRON [Concomitant]
     Active Substance: PALONOSETRON
     Indication: Prophylaxis
     Dates: start: 20220205

REACTIONS (1)
  - Breast cancer [Recovering/Resolving]

NARRATIVE: CASE EVENT DATE: 20220112
